FAERS Safety Report 7774424 (Version 3)
Quarter: 2014Q2

REPORT INFORMATION
  Report Type: Report from Study
  Country: ZA (occurrence: ZA)
  Receive Date: 20110126
  Receipt Date: 20140415
  Transmission Date: 20141212
  Serious: Yes (Death, Life-Threatening, Hospitalization, Other)
  Sender: FDA-Public Use
  Company Number: ZA-SANOFI-AVENTIS-2011SA002592

PATIENT
  Age: 50 Year
  Sex: Female
  Weight: 71.9 kg

DRUGS (10)
  1. RIFAMPICIN [Suspect]
     Indication: PULMONARY TUBERCULOSIS
     Route: 065
     Dates: start: 20101022, end: 20110418
  2. ISONIAZID [Suspect]
     Indication: PULMONARY TUBERCULOSIS
     Route: 065
     Dates: start: 20101020, end: 20110418
  3. ETHAMBUTOL [Suspect]
     Indication: PULMONARY TUBERCULOSIS
     Route: 065
     Dates: start: 20101020, end: 20110418
  4. PYRAZINAMIDE [Suspect]
     Indication: PULMONARY TUBERCULOSIS
     Route: 065
     Dates: start: 20101022, end: 20110418
  5. PLACEBO [Suspect]
     Indication: PRODUCT USED FOR UNKNOWN INDICATION
     Route: 065
     Dates: start: 20101022, end: 20110418
  6. PERINDOPRIL [Suspect]
     Indication: PRODUCT USED FOR UNKNOWN INDICATION
     Route: 048
     Dates: start: 20110128, end: 20110413
  7. ADALAT XL [Concomitant]
     Route: 048
     Dates: start: 20110128, end: 20110413
  8. GLIBENCLAMIDE [Concomitant]
     Route: 048
     Dates: start: 2008
  9. PHARMAPRESS [Concomitant]
     Route: 048
     Dates: start: 20101126
  10. ASPIRIN [Concomitant]
     Route: 048
     Dates: start: 20101120

REACTIONS (6)
  - Visual acuity reduced [Recovered/Resolved]
  - Hypoglycaemia [Recovered/Resolved]
  - Cardiac failure [Fatal]
  - Haematemesis [Unknown]
  - Hypertension [Fatal]
  - Renal failure [Unknown]
